FAERS Safety Report 15301038 (Version 1)
Quarter: 2018Q3

REPORT INFORMATION
  Report Type: Spontaneous
  Country: ES (occurrence: ES)
  Receive Date: 20180821
  Receipt Date: 20180821
  Transmission Date: 20181010
  Serious: Yes (Other)
  Sender: FDA-Public Use
  Company Number: ES-APOTEX-2018AP019469

PATIENT
  Age: 53 Year
  Sex: Female

DRUGS (1)
  1. CAPTOPRIL. [Suspect]
     Active Substance: CAPTOPRIL
     Indication: PRODUCT USED FOR UNKNOWN INDICATION
     Dosage: UNK, UNKNOWN
     Route: 065

REACTIONS (4)
  - Cholestatic liver injury [Unknown]
  - Hypersensitivity [Unknown]
  - Drug-induced liver injury [Unknown]
  - Idiosyncratic drug reaction [Unknown]
